FAERS Safety Report 25830022 (Version 1)
Quarter: 2025Q3

REPORT INFORMATION
  Report Type: Other
  Country: CN (occurrence: CN)
  Receive Date: 20250922
  Receipt Date: 20250922
  Transmission Date: 20251020
  Serious: Yes (Death, Hospitalization, Other)
  Sender: BIONPHARMA INC.
  Company Number: CN-Bion-015257

PATIENT
  Age: 15 Year
  Sex: Male

DRUGS (1)
  1. LOPERAMIDE HYDROCHLORIDE [Suspect]
     Active Substance: LOPERAMIDE HYDROCHLORIDE
     Indication: Product used for unknown indication

REACTIONS (8)
  - Cardiotoxicity [Fatal]
  - Depressed level of consciousness [Fatal]
  - Respiratory arrest [Fatal]
  - Cardiac arrest [Fatal]
  - Toxicity to various agents [Fatal]
  - Overdose [Fatal]
  - Electrocardiogram QT prolonged [Fatal]
  - Brain injury [Fatal]
